FAERS Safety Report 16026591 (Version 2)
Quarter: 2019Q2

REPORT INFORMATION
  Report Type: Spontaneous
  Country: US (occurrence: US)
  Receive Date: 20190302
  Receipt Date: 20190404
  Transmission Date: 20190711
  Serious: Yes (Other)
  Sender: FDA-Public Use
  Company Number: US-JNJFOC-20190219923

PATIENT
  Age: 42 Year
  Sex: Male
  Weight: 90.72 kg

DRUGS (1)
  1. INVEGA TRINZA [Suspect]
     Active Substance: PALIPERIDONE PALMITATE
     Indication: SCHIZOAFFECTIVE DISORDER
     Route: 030
     Dates: start: 201509

REACTIONS (4)
  - Schizoaffective disorder [Unknown]
  - Product use in unapproved indication [Unknown]
  - Off label use [Unknown]
  - Treatment failure [Unknown]

NARRATIVE: CASE EVENT DATE: 201509
